FAERS Safety Report 8928855 (Version 1)
Quarter: 2012Q4

REPORT INFORMATION
  Report Type: Spontaneous
  Country: DE (occurrence: None)
  Receive Date: 20121120
  Receipt Date: 20121120
  Transmission Date: 20130627
  Serious: Yes (Other)
  Sender: FDA-Public Use
  Company Number: AUR-APL-2012-04866

PATIENT
  Sex: Female
  Weight: 62 kg

DRUGS (1)
  1. SIMVASTATIN (SIMVASTATIN) [Suspect]
     Indication: INCREASED LDL
     Route: 048
     Dates: start: 201201

REACTIONS (3)
  - Muscle spasms [None]
  - Pain [None]
  - Blood creatine phosphokinase increased [None]
